FAERS Safety Report 10231630 (Version 3)
Quarter: 2014Q2

REPORT INFORMATION
  Report Type: Spontaneous
  Country: SE (occurrence: SE)
  Receive Date: 20140611
  Receipt Date: 20140619
  Transmission Date: 20141212
  Serious: Yes (Hospitalization)
  Sender: FDA-Public Use
  Company Number: SE-JNJFOC-20140514845

PATIENT
  Sex: Female

DRUGS (1)
  1. NICORETTE 2MG MEDICATED CHEWING GUM [Suspect]
     Indication: SMOKING CESSATION THERAPY
     Dosage: 1 BLISTER PACKED STRIP DAILY; INITIATED APPROXIMATELY 10 YEARS AGO
     Route: 048

REACTIONS (3)
  - Diarrhoea haemorrhagic [Unknown]
  - Extra dose administered [Unknown]
  - Intentional product misuse [Unknown]
